FAERS Safety Report 8319292 (Version 4)
Quarter: 2015Q1

REPORT INFORMATION
  Report Type: Spontaneous
  Country: US (occurrence: None)
  Receive Date: 20111222
  Receipt Date: 20150226
  Transmission Date: 20150721
  Serious: Yes (Other)
  Sender: FDA-Public Use
  Company Number: TPA2011A08565

PATIENT
  Age: 71 Year
  Sex: Male

DRUGS (1)
  1. ACTOS [Suspect]
     Active Substance: PIOGLITAZONE HYDROCHLORIDE
     Indication: TYPE 2 DIABETES MELLITUS
     Dosage: 45 MG, 1 IN 1 D
     Dates: start: 200811, end: 201111

REACTIONS (2)
  - Haematuria [None]
  - Bladder transitional cell carcinoma [None]

NARRATIVE: CASE EVENT DATE: 20111128
